FAERS Safety Report 8308107-3 (Version None)
Quarter: 2012Q2

REPORT INFORMATION
  Report Type: 
  Country: None (occurrence: None)
  Receive Date: 20120420
  Receipt Date: 20120405
  Transmission Date: 20120825
  Serious: Yes (Other)
  Sender: FDA-Public Use
  Company Number: PHHY2012JP025091

PATIENT
  Sex: Male

DRUGS (4)
  1. LUCENTIS [Suspect]
     Indication: AGE-RELATED MACULAR DEGENERATION
     Dosage: 0.05 ML ONCE EY
     Dates: start: 20111118, end: 20111118
  2. LUCENTIS [Suspect]
     Indication: AGE-RELATED MACULAR DEGENERATION
     Dosage: 0.05 ML ONCE EY
     Dates: start: 20111216, end: 20111216
  3. LUCENTIS [Suspect]
     Indication: AGE-RELATED MACULAR DEGENERATION
     Dosage: 0.05 ML ONCE EY
     Dates: start: 20111014, end: 20111014
  4. VISUDYNE [Suspect]
     Indication: AGE-RELATED MACULAR DEGENERATION
     Dates: start: 20111003, end: 20111003

REACTIONS (5)
  - RETINAL OEDEMA [None]
  - AGE-RELATED MACULAR DEGENERATION [None]
  - CONDITION AGGRAVATED [None]
  - INJECTION SITE PAIN [None]
  - THROMBOSIS [None]
